FAERS Safety Report 26055111 (Version 4)
Quarter: 2025Q4

REPORT INFORMATION
  Report Type: Report from Study
  Country: US (occurrence: US)
  Receive Date: 20251117
  Receipt Date: 20251216
  Transmission Date: 20260118
  Serious: No
  Sender: MALLINCKRODT
  Company Number: US-MALLINCKRODT-MNK202506809

PATIENT
  Age: 63 Year
  Sex: Female
  Weight: 182 kg

DRUGS (2)
  1. CORTICOTROPIN [Suspect]
     Active Substance: CORTICOTROPIN
     Indication: Sarcoidosis
     Dosage: 40 UNITS
     Route: 058
     Dates: start: 20251023
  2. MULLEIN [Concomitant]
     Dosage: UNKNOWN

REACTIONS (5)
  - Eye pain [Unknown]
  - Productive cough [Unknown]
  - Pollakiuria [Unknown]
  - Constipation [Unknown]
  - Blood pressure increased [Recovering/Resolving]

NARRATIVE: CASE EVENT DATE: 20250101
